FAERS Safety Report 11081663 (Version 1)
Quarter: 2015Q2

REPORT INFORMATION
  Report Type: Spontaneous
  Country: US (occurrence: None)
  Receive Date: 20150429
  Receipt Date: 20150429
  Transmission Date: 20150821
  Serious: Yes (Hospitalization, Other)
  Sender: FDA-Public Use
  Company Number: 2015SMT00052

PATIENT
  Age: 86 Year
  Sex: Female
  Weight: 60.8 kg

DRUGS (1)
  1. REGRANEX [Suspect]
     Active Substance: BECAPLERMIN
     Indication: WOUND
     Route: 061
     Dates: start: 201504, end: 201504

REACTIONS (2)
  - Incision site erythema [None]
  - Osteomyelitis [None]

NARRATIVE: CASE EVENT DATE: 201504
